FAERS Safety Report 11189493 (Version 3)
Quarter: 2015Q3

REPORT INFORMATION
  Report Type: Report from Study
  Country: JP (occurrence: JP)
  Receive Date: 20150615
  Receipt Date: 20150806
  Transmission Date: 20151125
  Serious: Yes (Death, Life-Threatening)
  Sender: FDA-Public Use
  Company Number: JP-OTSUKA-2015_002870

PATIENT

DRUGS (17)
  1. AMINOLEBAN [Concomitant]
     Active Substance: AMINO ACIDS
     Indication: PRODUCT USED FOR UNKNOWN INDICATION
     Dosage: 200 ML/DAY
     Route: 041
     Dates: end: 20150325
  2. HUMALOG [Concomitant]
     Active Substance: INSULIN LISPRO
     Indication: PRODUCT USED FOR UNKNOWN INDICATION
     Dosage: 11 IU/DAY
     Route: 058
     Dates: end: 20150404
  3. URSO S [Concomitant]
     Indication: PRODUCT USED FOR UNKNOWN INDICATION
     Dosage: 600 MG/DAY
     Route: 048
     Dates: end: 20150404
  4. TOLVAPTAN [Suspect]
     Active Substance: TOLVAPTAN
     Indication: OEDEMA DUE TO HEPATIC DISEASE
     Dosage: 3.75 MG, QD
     Route: 048
     Dates: start: 20150316, end: 20150403
  5. PARIET [Concomitant]
     Active Substance: RABEPRAZOLE SODIUM
     Indication: PROPHYLAXIS
     Dosage: 10 MG/DAY
     Route: 048
     Dates: end: 20150404
  6. LAGNOS [Concomitant]
     Indication: HYPERAMMONAEMIA
     Dosage: 48.15 G/DAY
     Route: 048
     Dates: end: 20150404
  7. DIART [Concomitant]
     Active Substance: AZOSEMIDE
     Indication: FLUID RETENTION
     Dosage: 60 MG/DAY
     Route: 048
     Dates: end: 20150404
  8. L-CARTIN TABLETS 300MG [Concomitant]
     Indication: PRODUCT USED FOR UNKNOWN INDICATION
     Dosage: 900 MG/DAY
     Route: 048
     Dates: start: 20150312, end: 20150404
  9. LASIX M [Concomitant]
     Active Substance: FUROSEMIDE
     Indication: FLUID RETENTION
     Dosage: 20 MG/DAY
     Route: 042
     Dates: end: 20150304
  10. LANTUS [Concomitant]
     Active Substance: INSULIN GLARGINE
     Indication: PRODUCT USED FOR UNKNOWN INDICATION
     Dosage: 3 IU/DAY
     Route: 058
     Dates: end: 20150404
  11. MAGMITT [Concomitant]
     Active Substance: MAGNESIUM OXIDE
     Indication: PRODUCT USED FOR UNKNOWN INDICATION
     Dosage: 990 MG/DAY
     Route: 048
     Dates: end: 20150404
  12. LASIX M [Concomitant]
     Active Substance: FUROSEMIDE
     Indication: FLUID RETENTION
     Dosage: 60 MG/DAY
     Route: 048
     Dates: end: 20150404
  13. PLAVIX [Concomitant]
     Active Substance: CLOPIDOGREL BISULFATE
     Indication: PRODUCT USED FOR UNKNOWN INDICATION
     Dosage: 75 MG/DAY
     Route: 048
     Dates: end: 20150404
  14. ISOLEUCINE W/LEUCINE/VALINE [Concomitant]
     Active Substance: ISOLEUCINE\LEUCINE\VALINE
     Indication: FLUID RETENTION
     Dosage: 12.45 G/DAY
     Route: 048
     Dates: end: 20150404
  15. SENNOSIDE A+B [Concomitant]
     Active Substance: SENNOSIDES A AND B
     Indication: PRODUCT USED FOR UNKNOWN INDICATION
     Dosage: 24 MG/DAY
     Route: 048
     Dates: start: 20150318, end: 20150322
  16. LASIX M [Concomitant]
     Active Substance: FUROSEMIDE
     Dosage: 20 MG/DAY
     Route: 042
     Dates: start: 20150405, end: 20150405
  17. KENEI G [Concomitant]
     Active Substance: GLYCERIN
     Indication: PRODUCT USED FOR UNKNOWN INDICATION
     Dosage: 60 ML/DAY
     Route: 054
     Dates: start: 20150325, end: 20150404

REACTIONS (4)
  - Restlessness [Fatal]
  - Vomiting [Fatal]
  - Abdominal pain [Fatal]
  - Hypernatraemia [Not Recovered/Not Resolved]

NARRATIVE: CASE EVENT DATE: 20150405
